FAERS Safety Report 17785380 (Version 1)
Quarter: 2020Q2

REPORT INFORMATION
  Report Type: Spontaneous
  Country: GB (occurrence: GB)
  Receive Date: 20200514
  Receipt Date: 20200514
  Transmission Date: 20200714
  Serious: Yes (Other)
  Sender: FDA-Public Use
  Company Number: GB-PFIZER INC-2020189450

PATIENT
  Age: 82 Year
  Sex: Male
  Weight: 57.6 kg

DRUGS (5)
  1. TAFAMIDIS [Suspect]
     Active Substance: TAFAMIDIS MEGLUMINE
     Indication: AMYLOIDOSIS
     Dosage: 61 MG
     Route: 048
     Dates: start: 20200330, end: 20200420
  2. MOMETASONE [Concomitant]
     Active Substance: MOMETASONE
     Dosage: ONE PUFF EACH SIDE DAILY
  3. RIVAROXABAN [Concomitant]
     Active Substance: RIVAROXABAN
     Dosage: 20 MG, 1X/DAY
  4. SPIRONOLACTONE. [Concomitant]
     Active Substance: SPIRONOLACTONE
     Dosage: 12.5 MG, 1X/DAY
  5. FUROSEMIDE. [Concomitant]
     Active Substance: FUROSEMIDE
     Dosage: 60 MG, 1X/DAY (40MG AND 20MG DAILY.

REACTIONS (3)
  - Renal function test abnormal [Unknown]
  - Faeces discoloured [Not Recovered/Not Resolved]
  - Haemoglobin decreased [Unknown]

NARRATIVE: CASE EVENT DATE: 20200407
